FAERS Safety Report 15907228 (Version 1)
Quarter: 2019Q1

REPORT INFORMATION
  Report Type: Spontaneous
  Country: US (occurrence: US)
  Receive Date: 20190204
  Receipt Date: 20190204
  Transmission Date: 20190417
  Serious: No
  Sender: FDA-Public Use
  Company Number: US-PFIZER INC-2019041551

PATIENT
  Age: 35 Year
  Sex: Female
  Weight: 127.1 kg

DRUGS (1)
  1. LYRICA [Suspect]
     Active Substance: PREGABALIN
     Indication: NEUROPATHY PERIPHERAL
     Dosage: 50 MG, AS NEEDED (EVERY 8 HOURS AS NEEDED)
     Route: 048
     Dates: start: 201808, end: 20190117

REACTIONS (4)
  - Pain in extremity [Recovered/Resolved]
  - Gait inability [Not Recovered/Not Resolved]
  - Product dose omission [Unknown]
  - Pain [Not Recovered/Not Resolved]

NARRATIVE: CASE EVENT DATE: 20190118
